FAERS Safety Report 20178457 (Version 1)
Quarter: 2021Q4

REPORT INFORMATION
  Report Type: Spontaneous
  Country: AE (occurrence: IN)
  Receive Date: 20211213
  Receipt Date: 20211213
  Transmission Date: 20220303
  Serious: No
  Sender: FDA-Public Use
  Company Number: AE-ALKEM LABORATORIES LIMITED-IN-ALKEM-2020-07880

PATIENT
  Age: 45 Year
  Sex: Male

DRUGS (2)
  1. ISONIAZID [Suspect]
     Active Substance: ISONIAZID
     Indication: Pulmonary tuberculosis
     Dosage: 300 MILLIGRAM, QD
     Route: 065
  2. RIFAMPIN [Concomitant]
     Active Substance: RIFAMPIN
     Indication: Pulmonary tuberculosis
     Dosage: 450 MILLIGRAM, QD
     Route: 065

REACTIONS (1)
  - Gynaecomastia [Recovered/Resolved]
